FAERS Safety Report 12258306 (Version 1)
Quarter: 2016Q2

REPORT INFORMATION
  Report Type: Report from Study
  Country: US (occurrence: US)
  Receive Date: 20160412
  Receipt Date: 20160412
  Transmission Date: 20160815
  Serious: Yes (Other)
  Sender: FDA-Public Use
  Company Number: US-MDT-ADR-2016-00335

PATIENT
  Age: 51 Year
  Sex: Female

DRUGS (8)
  1. BUPIVACAINE. [Suspect]
     Active Substance: BUPIVACAINE
     Dosage: 2.998 MG/DAY
     Route: 037
     Dates: start: 20130207
  2. BUPIVACAINE. [Suspect]
     Active Substance: BUPIVACAINE
     Dosage: 5.997 MG/DAY
     Route: 037
     Dates: end: 20130207
  3. COMPOUNDED BACLOFEN [Suspect]
     Active Substance: BACLOFEN
     Dosage: 29.98 MCG/DAY
     Route: 037
     Dates: start: 20130207
  4. MORPHINE [Suspect]
     Active Substance: MORPHINE
     Dosage: 1.499 MG/DAY
     Route: 037
     Dates: start: 20130207
  5. COMPOUNDED BACLOFEN [Suspect]
     Active Substance: BACLOFEN
     Dosage: 59.97 MCG/DAY
     Route: 037
     Dates: end: 20130207
  6. CLONIDINE. [Suspect]
     Active Substance: CLONIDINE
     Dosage: 39.98 MCG/DAY
     Route: 037
     Dates: start: 20130207
  7. MORPHINE [Suspect]
     Active Substance: MORPHINE
     Dosage: 2.998 MG/DAY
     Route: 037
     Dates: end: 20130207
  8. CLONIDINE. [Suspect]
     Active Substance: CLONIDINE
     Dosage: 79.95 MCG/DAY
     Route: 037
     Dates: end: 20130207

REACTIONS (3)
  - Headache [Recovered/Resolved]
  - Nausea [Recovered/Resolved]
  - Cerebrospinal fluid leakage [Recovered/Resolved]

NARRATIVE: CASE EVENT DATE: 20130211
